FAERS Safety Report 9264061 (Version 4)
Quarter: 2015Q1

REPORT INFORMATION
  Report Type: Spontaneous
  Country: US (occurrence: US)
  Receive Date: 20130430
  Receipt Date: 20150311
  Transmission Date: 20150721
  Serious: No
  Sender: FDA-Public Use
  Company Number: US-009507513-1304USA016099

PATIENT
  Sex: Male
  Weight: 75.28 kg

DRUGS (3)
  1. PROSCAR [Suspect]
     Active Substance: FINASTERIDE
     Indication: ALOPECIA
     Dosage: 5 MG, QD
     Route: 048
     Dates: start: 2006
  2. FINASTERIDE. [Suspect]
     Active Substance: FINASTERIDE
     Indication: ALOPECIA
     Dosage: 5 MG, QD
     Route: 048
     Dates: start: 20060626, end: 20091118
  3. PROPECIA [Suspect]
     Active Substance: FINASTERIDE
     Indication: ALOPECIA
     Dosage: 1 MG, QD
     Route: 048
     Dates: start: 2006, end: 20060626

REACTIONS (28)
  - Dyspnoea [Unknown]
  - Panic attack [Unknown]
  - Sinusitis [Unknown]
  - Throat irritation [Unknown]
  - Pyrexia [Unknown]
  - Varicocele [Unknown]
  - Weight decreased [Unknown]
  - Dysuria [Unknown]
  - Depression [Unknown]
  - Prostatic disorder [Unknown]
  - Sinusitis [Unknown]
  - Drug administration error [Unknown]
  - Obsessive-compulsive disorder [Unknown]
  - Tinea versicolour [Unknown]
  - Rhinitis [Unknown]
  - Insomnia [Unknown]
  - Anger [Unknown]
  - Erectile dysfunction [Not Recovered/Not Resolved]
  - Stress [Unknown]
  - Anxiety [Unknown]
  - Injury [Unknown]
  - Decreased appetite [Unknown]
  - Hyperkeratosis [Unknown]
  - Tobacco abuse [Unknown]
  - Libido decreased [Unknown]
  - Fatigue [Unknown]
  - Attention deficit/hyperactivity disorder [Unknown]
  - Sexual dysfunction [Not Recovered/Not Resolved]

NARRATIVE: CASE EVENT DATE: 2006
